FAERS Safety Report 4740311-3 (Version None)
Quarter: 2005Q3

REPORT INFORMATION
  Report Type: 
  Country: None (occurrence: None)
  Receive Date: 20050729
  Receipt Date: 20050603
  Transmission Date: 20060218
  Serious: Yes (Hospitalization)
  Sender: FDA-Public Use
  Company Number: RB-1722-2005

PATIENT
  Age: 66 Year
  Sex: Female
  Weight: 54.4316 kg

DRUGS (7)
  1. SUBUTEX [Suspect]
     Indication: DRUG DEPENDENCE
     Dosage: 2 MG QID SL
     Dates: start: 20050106, end: 20050529
  2. SUBUTEX [Suspect]
     Indication: PAIN
     Dosage: 2 MG QID SL
     Dates: start: 20050106, end: 20050529
  3. ALTACE [Concomitant]
  4. PLAVIX [Concomitant]
  5. TOPROL-XL [Concomitant]
  6. SYNTHROID [Concomitant]
  7. ATIVAN [Concomitant]

REACTIONS (4)
  - CHEST PAIN [None]
  - DEPRESSION [None]
  - DYSPNOEA [None]
  - SOMNOLENCE [None]
